FAERS Safety Report 7912968-7 (Version None)
Quarter: 2011Q4

REPORT INFORMATION
  Report Type: 
  Country: None (occurrence: None)
  Receive Date: 20111114
  Receipt Date: 20111103
  Transmission Date: 20120403
  Serious: Yes (Hospitalization)
  Sender: FDA-Public Use
  Company Number: US-BAYER-200935665NA

PATIENT
  Age: 23 Year
  Sex: Female
  Weight: 88.435 kg

DRUGS (3)
  1. BRETHINE [Concomitant]
  2. YASMIN [Suspect]
     Indication: PRODUCT USED FOR UNKNOWN INDICATION
     Dosage: SAMPLES RECEIVED IN MAY 2003
     Dates: start: 20050101, end: 20051201
  3. PRENATAL 1+1 W/IRON [Concomitant]

REACTIONS (3)
  - CHOLECYSTITIS CHRONIC [None]
  - GALLBLADDER INJURY [None]
  - CHOLELITHIASIS [None]
